FAERS Safety Report 11689526 (Version 1)
Quarter: 2015Q4

REPORT INFORMATION
  Report Type: Spontaneous
  Country: US (occurrence: None)
  Receive Date: 20151030
  Receipt Date: 20151030
  Transmission Date: 20160304
  Serious: Yes (Hospitalization)
  Sender: FDA-Public Use
  Company Number: None

PATIENT
  Age: 75 Year
  Sex: Female

DRUGS (14)
  1. CALCIUM [Concomitant]
     Active Substance: CALCIUM
  2. ISOSORBIDE. [Concomitant]
     Active Substance: ISOSORBIDE
  3. FISH OIL [Concomitant]
     Active Substance: FISH OIL
  4. VITAMIN E/B COMPLEX [Concomitant]
  5. CILOSTAZOL. [Concomitant]
     Active Substance: CILOSTAZOL
  6. ALBUTEROL. [Concomitant]
     Active Substance: ALBUTEROL
  7. URSODIOL. [Concomitant]
     Active Substance: URSODIOL
  8. RANEXA [Concomitant]
     Active Substance: RANOLAZINE
  9. NITROSTAT [Concomitant]
     Active Substance: NITROGLYCERIN
  10. PROLIA [Suspect]
     Active Substance: DENOSUMAB
     Indication: SENILE OSTEOPOROSIS
     Dosage: 60MG, EVERY 6 MONTHS?
     Route: 058
     Dates: start: 20140919
  11. ADVAIR HFA [Concomitant]
     Active Substance: FLUTICASONE PROPIONATE\SALMETEROL XINAFOATE
  12. LASIX [Concomitant]
     Active Substance: FUROSEMIDE
  13. OMEPRAZOLE. [Concomitant]
     Active Substance: OMEPRAZOLE
  14. SIMVASTATIN. [Concomitant]
     Active Substance: SIMVASTATIN

REACTIONS (3)
  - Cardiac failure congestive [None]
  - Arthralgia [None]
  - Pain [None]

NARRATIVE: CASE EVENT DATE: 20151001
